FAERS Safety Report 8958741 (Version 5)
Quarter: 2014Q1

REPORT INFORMATION
  Report Type: Report from Study
  Country: JP (occurrence: JP)
  Receive Date: 20121212
  Receipt Date: 20140206
  Transmission Date: 20141002
  Serious: Yes (Hospitalization, Other)
  Sender: FDA-Public Use
  Company Number: JP-VERTEX PHARMACEUTICAL INC.-2012-023647

PATIENT
  Age: 68 Year
  Sex: Male

DRUGS (18)
  1. VX-950 (TELAPREVIR) [Suspect]
     Indication: CHRONIC HEPATITIS C
     Dosage: 1500 MG, QD
     Route: 048
     Dates: start: 20120911, end: 20121202
  2. PEGINTERFERON ALFA-2B [Suspect]
     Indication: CHRONIC HEPATITIS C
     Dosage: 1.5 ?G/KG, QW
     Route: 058
     Dates: start: 20120911, end: 20121022
  3. PEGINTERFERON ALFA-2B [Suspect]
     Dosage: 0.75 ?G/KG, QW
     Route: 058
     Dates: start: 20121023, end: 20121104
  4. PEGINTERFERON ALFA-2B [Suspect]
     Dosage: 0.9375 ?G/KG, QW
     Route: 058
     Dates: start: 20121105, end: 20121111
  5. PEGINTERFERON ALFA-2B [Suspect]
     Dosage: 0.75 ?G/KG, QW
     Route: 058
     Dates: start: 20121112, end: 20121125
  6. PEGINTERFERON ALFA-2B [Suspect]
     Dosage: 0.5625 ?G/KG, QW
     Route: 058
     Dates: start: 20121126, end: 20121202
  7. PEGINTERFERON ALFA-2B [Suspect]
     Dosage: 0.75 ?G/KG, QW
     Route: 058
     Dates: start: 20121203, end: 20121216
  8. PEGINTERFERON ALFA-2B [Suspect]
     Dosage: 0.9375 ?G/KG, QW
     Route: 058
     Dates: start: 20121217, end: 20121224
  9. PEGINTERFERON ALFA-2B [Suspect]
     Dosage: 1.125 ?G/KG, QW
     Route: 058
     Dates: start: 20121225, end: 20130106
  10. PEGINTERFERON ALFA-2B [Suspect]
     Dosage: 1.3125 ?G/KG, QW
     Route: 058
     Dates: start: 20130107, end: 20130114
  11. PEGINTERFERON ALFA-2B [Suspect]
     Dosage: 1.5 ?G/KG, QW
     Route: 058
     Dates: start: 20130115, end: 20130218
  12. RIBAVIRIN [Suspect]
     Indication: CHRONIC HEPATITIS C
     Dosage: 400 MG, QD
     Route: 048
     Dates: start: 20120911, end: 20121001
  13. RIBAVIRIN [Suspect]
     Dosage: 200 MG, QD
     Route: 048
     Dates: start: 20121002, end: 20130128
  14. RIBAVIRIN [Suspect]
     Dosage: 400 MG, QD
     Route: 048
     Dates: start: 20130129, end: 20130224
  15. FEBURIC [Concomitant]
     Dosage: 10 MG, QD
     Route: 048
     Dates: start: 20120911, end: 20120913
  16. FEBURIC [Concomitant]
     Dosage: 60 MG, QD
  17. ATELEC [Concomitant]
     Dosage: 20 MG, QD
     Route: 048
     Dates: end: 20121022
  18. CELTOP [Concomitant]
     Dosage: 200 MG, QD
     Route: 048

REACTIONS (2)
  - Neutrophil count decreased [Not Recovered/Not Resolved]
  - Renal impairment [Recovered/Resolved]
